FAERS Safety Report 8200144-2 (Version None)
Quarter: 2012Q1

REPORT INFORMATION
  Report Type: 
  Country: None (occurrence: None)
  Receive Date: 20120312
  Receipt Date: 20120229
  Transmission Date: 20120608
  Serious: Yes (Other)
  Sender: FDA-Public Use
  Company Number: US-RB-033265-12

PATIENT
  Sex: Female
  Weight: 62.27 kg

DRUGS (4)
  1. DIPHENHYDRAMINE HCL [Concomitant]
     Indication: PRODUCT USED FOR UNKNOWN INDICATION
     Route: 048
  2. CRANBERRY TABLETS [Concomitant]
     Indication: PRODUCT USED FOR UNKNOWN INDICATION
     Route: 048
  3. MUCINEX DM [Suspect]
     Indication: UPPER RESPIRATORY TRACT INFECTION
     Route: 048
  4. ALLEGRA [Concomitant]
     Indication: PRODUCT USED FOR UNKNOWN INDICATION
     Dosage: ROUTINELY TAKES EVERY DAY
     Route: 048

REACTIONS (10)
  - DYSSTASIA [None]
  - BALANCE DISORDER [None]
  - CONFUSIONAL STATE [None]
  - HYPOAESTHESIA ORAL [None]
  - DISORIENTATION [None]
  - TREMOR [None]
  - DIZZINESS [None]
  - DYSARTHRIA [None]
  - NERVOUSNESS [None]
  - FATIGUE [None]
